FAERS Safety Report 14347552 (Version 1)
Quarter: 2018Q1

REPORT INFORMATION
  Report Type: Not Available
  Country: None (occurrence: US)
  Receive Date: 20180103
  Receipt Date: 20180103
  Transmission Date: 20180509
  Serious: No
  Sender: FDA-Public Use
  Company Number: US-AKORN-74792

PATIENT
  Age: 10 Year
  Sex: Male

DRUGS (1)
  1. CYCLOPENTOLATE HYDROCHLORIDE 1% OPHTHALMIC SOLUTION [Suspect]
     Active Substance: CYCLOPENTOLATE HYDROCHLORIDE

REACTIONS (1)
  - Pupil fixed [Recovered/Resolved]

NARRATIVE: CASE EVENT DATE: 20171204
